FAERS Safety Report 5912588-X (Version None)
Quarter: 2008Q4

REPORT INFORMATION
  Report Type: 
  Country: None (occurrence: None)
  Receive Date: 20081006
  Receipt Date: 20080924
  Transmission Date: 20090506
  Serious: Yes (Death)
  Sender: FDA-Public Use
  Company Number: 2008-03617

PATIENT

DRUGS (7)
  1. VELCADE [Suspect]
     Indication: MULTIPLE MYELOMA
     Dosage: 1 MG/M2, IV BOLUS
     Route: 040
  2. MELPHALAN(MELPHALAN) [Suspect]
     Indication: MULTIPLE MYELOMA
     Dosage: 0.15 MG/M2, ORAL
     Route: 048
  3. THALIDOMIDE [Suspect]
     Indication: MULTIPLE MYELOMA
     Dosage: 100 MG
  4. DEXAMETHASONE TAB [Suspect]
     Indication: MULTIPLE MYELOMA
     Dosage: 12 MG/M2
  5. VALACYCLOVIR [Concomitant]
  6. BACTRIM [Concomitant]
  7. ZOLEDRONIC ACID [Concomitant]

REACTIONS (1)
  - NECROTISING FASCIITIS [None]
